FAERS Safety Report 6169623-6 (Version None)
Quarter: 2009Q2

REPORT INFORMATION
  Report Type: 
  Country: None (occurrence: None)
  Receive Date: 20090428
  Receipt Date: 20090421
  Transmission Date: 20091009
  Serious: Yes (Other)
  Sender: FDA-Public Use
  Company Number: US-ASTRAZENECA-2005UW00957

PATIENT
  Age: 77 Year
  Sex: Female
  Weight: 49.4 kg

DRUGS (8)
  1. ARIMIDEX [Suspect]
     Indication: BREAST CANCER FEMALE
     Route: 048
     Dates: start: 20040915
  2. LAVOXINE [Concomitant]
  3. POTASSIUM CHLORIDE [Concomitant]
  4. TETRACYCLINE [Concomitant]
     Indication: ROSACEA
  5. HYDROCHLOROTHIAZIDE [Concomitant]
  6. FOSAMAX [Concomitant]
  7. THYROID TAB [Concomitant]
  8. DIURETIC [Concomitant]

REACTIONS (10)
  - ARTHRALGIA [None]
  - BACK PAIN [None]
  - BONE PAIN [None]
  - BREAST SWELLING [None]
  - BREAST TENDERNESS [None]
  - COUGH [None]
  - DEAFNESS [None]
  - LYMPHOEDEMA [None]
  - OROPHARYNGEAL PAIN [None]
  - WEIGHT INCREASED [None]
